FAERS Safety Report 5854966-3 (Version None)
Quarter: 2008Q3

REPORT INFORMATION
  Report Type: 
  Country: None (occurrence: None)
  Receive Date: 20080822
  Receipt Date: 20080814
  Transmission Date: 20090109
  Serious: Yes (Hospitalization)
  Sender: FDA-Public Use
  Company Number: US-MERCK-0808USA03749

PATIENT
  Age: 75 Year
  Sex: Female

DRUGS (1)
  1. HYDRODIURIL [Suspect]
     Route: 048
     Dates: end: 20010101

REACTIONS (3)
  - HYPERNATRAEMIA [None]
  - HYPONATRAEMIA [None]
  - HYPOVOLAEMIA [None]
